FAERS Safety Report 4953188-8 (Version None)
Quarter: 2006Q1

REPORT INFORMATION
  Report Type: 
  Country: None (occurrence: None)
  Receive Date: 20060324
  Receipt Date: 20060221
  Transmission Date: 20060701
  Serious: Yes (Hospitalization)
  Sender: FDA-Public Use
  Company Number: US-MERCK-0602USA05388

PATIENT
  Age: 72 Year
  Sex: Male

DRUGS (5)
  1. VIOXX [Suspect]
     Route: 048
  2. PAXIL [Concomitant]
     Route: 065
  3. ZEBETA [Concomitant]
     Route: 065
  4. ALEVE [Concomitant]
     Route: 065
  5. DECADRON PHOSPHATE [Suspect]
     Route: 065

REACTIONS (4)
  - ARTHRALGIA [None]
  - BLOOD GLUCOSE INCREASED [None]
  - CONVULSION [None]
  - HAEMORRHAGIC STROKE [None]
